FAERS Safety Report 8224264-1 (Version None)
Quarter: 2012Q1

REPORT INFORMATION
  Report Type: 
  Country: None (occurrence: None)
  Receive Date: 20120321
  Receipt Date: 20120312
  Transmission Date: 20120608
  Serious: Yes (Other)
  Sender: FDA-Public Use
  Company Number: PHHY2012JP019100

PATIENT
  Age: 68 Year
  Sex: Female

DRUGS (5)
  1. LASIX [Suspect]
     Dosage: 22 DF, DAILY
     Route: 048
  2. DIOVAN [Suspect]
     Indication: HYPERTENSION
     Dosage: 22 DF (1760 MG) DAILY
     Route: 048
  3. LIPITOR [Suspect]
     Dosage: 22 DF, DAILY
     Route: 048
  4. EXFORGE [Suspect]
     Indication: HYPERTENSION
     Dosage: 22 DF, DAILY
     Route: 048
  5. AMARYL [Suspect]
     Dosage: 22 DF, DAILY
     Route: 048

REACTIONS (2)
  - BLOOD PRESSURE DECREASED [None]
  - MULTIPLE DRUG OVERDOSE [None]
